FAERS Safety Report 18817324 (Version 1)
Quarter: 2021Q1

REPORT INFORMATION
  Report Type: Spontaneous
  Country: US (occurrence: US)
  Receive Date: 20210201
  Receipt Date: 20210201
  Transmission Date: 20210419
  Serious: Yes (Death, Life-Threatening, Hospitalization)
  Sender: FDA-Public Use
  Company Number: US-MYLANLABS-2021M1005878

PATIENT
  Age: 53 Year
  Sex: Male

DRUGS (4)
  1. DOXORUBICIN [Suspect]
     Active Substance: DOXORUBICIN
     Indication: ADRENAL GLAND CANCER
     Dosage: 100 MILLIGRAM RIGHT...
     Route: 013
  2. DOXORUBICIN [Suspect]
     Active Substance: DOXORUBICIN
     Indication: SARCOMA METASTATIC
  3. DOXORUBICIN [Suspect]
     Active Substance: DOXORUBICIN
     Indication: METASTASES TO LIVER
  4. PREDNISONE. [Suspect]
     Active Substance: PREDNISONE
     Indication: PRIMARY ADRENAL INSUFFICIENCY
     Dosage: 20 MILLIGRAM, BID
     Route: 048

REACTIONS (6)
  - Cardio-respiratory arrest [Recovered/Resolved]
  - Product dose omission in error [Unknown]
  - Adrenocortical insufficiency acute [Fatal]
  - Withdrawal syndrome [Fatal]
  - Aspartate aminotransferase increased [Unknown]
  - Alanine aminotransferase increased [Unknown]
